FAERS Safety Report 8120889-2 (Version None)
Quarter: 2012Q1

REPORT INFORMATION
  Report Type: 
  Country: None (occurrence: None)
  Receive Date: 20120203
  Receipt Date: 20120130
  Transmission Date: 20120608
  Serious: Yes (Hospitalization)
  Sender: FDA-Public Use
  Company Number: 2012MA001377

PATIENT
  Age: 70 Year
  Sex: Male

DRUGS (4)
  1. ETODOLAC [Suspect]
     Indication: BACK PAIN
     Dosage: 400 MG;QD
  2. DIFLUPREDNATE [Concomitant]
  3. PREDNISOLONE [Concomitant]
  4. MEROPENEM [Concomitant]

REACTIONS (6)
  - ACUTE GENERALISED EXANTHEMATOUS PUSTULOSIS [None]
  - SPONDYLITIS [None]
  - FLUID RETENTION [None]
  - MUSCLE ABSCESS [None]
  - BACTERIAL TEST POSITIVE [None]
  - STREPTOCOCCUS TEST POSITIVE [None]
